FAERS Safety Report 12742797 (Version 2)
Quarter: 2016Q3

REPORT INFORMATION
  Report Type: Spontaneous
  Country: FR (occurrence: FR)
  Receive Date: 20160914
  Receipt Date: 20160927
  Transmission Date: 20161109
  Serious: Yes (Hospitalization, Other)
  Sender: FDA-Public Use
  Company Number: FR-PFIZER INC-2016421610

PATIENT
  Age: 18 Year
  Sex: Female

DRUGS (12)
  1. KALETRA [Suspect]
     Active Substance: LOPINAVIR\RITONAVIR
     Indication: PROPHYLAXIS AGAINST HIV INFECTION
     Dosage: 2 DF, 2X/DAY
     Route: 048
     Dates: start: 20160716, end: 20160720
  2. DESOGESTREL [Concomitant]
     Active Substance: DESOGESTREL
     Dosage: 1 DF, DAILY
  3. XANAX [Concomitant]
     Active Substance: ALPRAZOLAM
     Indication: ANXIETY
     Dosage: 0.25 MG, AS NEEDED
  4. TRUVADA [Suspect]
     Active Substance: EMTRICITABINE\TENOFOVIR DISOPROXIL FUMARATE
     Indication: PROPHYLAXIS AGAINST HIV INFECTION
     Dosage: 1 DF, 1X/DAY
     Route: 048
     Dates: start: 20160716, end: 20160720
  5. PROGRAF [Suspect]
     Active Substance: TACROLIMUS\TACROLIMUS ANHYDROUS
     Indication: HEART TRANSPLANT
     Dosage: 2 MG, 2X/DAY (MORNING AND EVENING)
     Route: 048
     Dates: end: 20160718
  6. ORAP [Concomitant]
     Active Substance: PIMOZIDE
     Dosage: 1 MG, 1X/DAY
  7. ELLAONE [Concomitant]
     Active Substance: ULIPRISTAL ACETATE
     Dosage: UNK, SINGLE
     Dates: start: 20160716, end: 20160716
  8. CEFTRIAXONE SODIUM. [Suspect]
     Active Substance: CEFTRIAXONE SODIUM
     Dosage: 500 MG, SINGLE
     Dates: start: 20160716, end: 20160716
  9. VENTOLINE [Concomitant]
     Active Substance: ALBUTEROL
     Dosage: UNK, AS NEEDED
  10. ZITHROMAX [Suspect]
     Active Substance: AZITHROMYCIN DIHYDRATE
     Indication: PROPHYLAXIS URINARY TRACT INFECTION
     Dosage: 1000 MG, SINGLE
     Route: 048
     Dates: start: 20160716, end: 20160716
  11. PROGRAF [Suspect]
     Active Substance: TACROLIMUS\TACROLIMUS ANHYDROUS
     Dosage: 2 MG, 2X/DAY (MORNING AND EVENING)
     Dates: start: 20160723
  12. PRAVASTATIN. [Concomitant]
     Active Substance: PRAVASTATIN
     Dosage: 5 MG, DAILY

REACTIONS (1)
  - Electrocardiogram QT prolonged [Recovered/Resolved]

NARRATIVE: CASE EVENT DATE: 20160716
